FAERS Safety Report 5227097-3 (Version None)
Quarter: 2007Q1

REPORT INFORMATION
  Report Type: 
  Country: None (occurrence: None)
  Receive Date: 20070201
  Receipt Date: 20070201
  Transmission Date: 20070707
  Serious: Yes (Other)
  Sender: FDA-Public Use
  Company Number: None

PATIENT
  Age: 85 Year
  Sex: Female

DRUGS (4)
  1. TRAMADOL HCL [Suspect]
     Indication: MUSCULOSKELETAL CHEST PAIN
     Dosage: ORAL;25.0 MILLIGRAM
     Dates: start: 20061105, end: 20061120
  2. ALENDRONATE SODIUM [Concomitant]
  3. PSYLLIUM [Concomitant]
  4. METOPROLOL SUCCINATE [Concomitant]

REACTIONS (2)
  - HALLUCINATION, AUDITORY [None]
  - HALLUCINATION, VISUAL [None]
